FAERS Safety Report 6049489-5 (Version None)
Quarter: 2009Q1

REPORT INFORMATION
  Report Type: 
  Country: None (occurrence: None)
  Receive Date: 20090121
  Receipt Date: 20090109
  Transmission Date: 20090719
  Serious: Yes (Hospitalization, Other)
  Sender: FDA-Public Use
  Company Number: 200812972BYL

PATIENT
  Age: 53 Year
  Sex: Female

DRUGS (21)
  1. FLUDARA [Suspect]
     Indication: FOLLICLE CENTRE LYMPHOMA, FOLLICULAR GRADE I, II, III STAGE IV
     Dosage: 40 MG ORAL
     Route: 048
     Dates: start: 20080414, end: 20080416
  2. FLUDARA [Suspect]
     Indication: FOLLICLE CENTRE LYMPHOMA, FOLLICULAR GRADE I, II, III STAGE IV
     Dosage: 40 MG ORAL
     Route: 048
     Dates: start: 20080507, end: 20080509
  3. FLUDARA [Suspect]
     Indication: FOLLICLE CENTRE LYMPHOMA, FOLLICULAR GRADE I, II, III STAGE IV
     Dosage: 40 MG ORAL
     Route: 048
     Dates: start: 20080527, end: 20080529
  4. FLUDARA [Suspect]
     Indication: FOLLICLE CENTRE LYMPHOMA, FOLLICULAR GRADE I, II, III STAGE IV
     Dosage: 40 MG ORAL
     Route: 048
     Dates: start: 20080618, end: 20080619
  5. CYCLOPHOSPHAMIDE [Suspect]
     Indication: FOLLICLE CENTRE LYMPHOMA, FOLLICULAR GRADE I, II, III STAGE IV
     Dosage: 470 MG INTRAVENOUS
     Route: 042
     Dates: start: 20080414, end: 20080416
  6. CYCLOPHOSPHAMIDE [Suspect]
     Indication: FOLLICLE CENTRE LYMPHOMA, FOLLICULAR GRADE I, II, III STAGE IV
     Dosage: 470 MG INTRAVENOUS
     Route: 042
     Dates: start: 20080507, end: 20080509
  7. CYCLOPHOSPHAMIDE [Suspect]
     Indication: FOLLICLE CENTRE LYMPHOMA, FOLLICULAR GRADE I, II, III STAGE IV
     Dosage: 470 MG INTRAVENOUS
     Route: 042
     Dates: start: 20080527, end: 20080529
  8. CYCLOPHOSPHAMIDE [Suspect]
     Indication: FOLLICLE CENTRE LYMPHOMA, FOLLICULAR GRADE I, II, III STAGE IV
     Dosage: 470 MG INTRAVENOUS
     Route: 042
     Dates: start: 20080617, end: 20080619
  9. RITUXAN (RITUXMAB) [Concomitant]
  10. MUCOSTA (REBAMIPIDE) [Concomitant]
  11. COTRIM [Concomitant]
  12. KYTRIL [Concomitant]
  13. NAUZELIN (DOMPERIDONE) [Concomitant]
  14. NEUTROGIN (LENOGRASTIM) [Concomitant]
  15. ACETAMINOPHEN [Concomitant]
  16. POLARAMINE [Concomitant]
  17. RITUXIMAB (RITUXIMAB) [Concomitant]
  18. CYCLOPHOSPHAMIDE [Concomitant]
  19. DOXORUBICIN HYDROCHLORIDE (DOXORUBICIN HYDROCHLORIDE) [Concomitant]
  20. VINCRISTINE SULFATE [Concomitant]
  21. PREDNISOLONE [Concomitant]

REACTIONS (8)
  - ANAEMIA [None]
  - BRONCHITIS [None]
  - CALCULUS URINARY [None]
  - HEPATIC FUNCTION ABNORMAL [None]
  - HERPES SIMPLEX [None]
  - NEUTROPHIL COUNT DECREASED [None]
  - PLATELET COUNT DECREASED [None]
  - URINARY TRACT INFECTION [None]
